FAERS Safety Report 13360305 (Version 1)
Quarter: 2017Q1

REPORT INFORMATION
  Report Type: Spontaneous
  Country: US (occurrence: US)
  Receive Date: 20170322
  Receipt Date: 20170322
  Transmission Date: 20170429
  Serious: No
  Sender: FDA-Public Use
  Company Number: US-UPSHER-SMITH LABORATORIES, INC.-17000068

PATIENT
  Age: 71 Year
  Sex: Male

DRUGS (9)
  1. CYMBALTA [Concomitant]
     Active Substance: DULOXETINE HYDROCHLORIDE
     Indication: DEPRESSION
     Dosage: UNK
  2. TESTOSTERONE. [Suspect]
     Active Substance: TESTOSTERONE
     Indication: APHRODISIAC THERAPY
     Dosage: 50 MG, QD
     Route: 061
     Dates: start: 2015, end: 201609
  3. TESTOSTERONE. [Suspect]
     Active Substance: TESTOSTERONE
     Dosage: 100 MG, QD
     Route: 061
     Dates: start: 2015, end: 2015
  4. TESTOSTERONE. [Suspect]
     Active Substance: TESTOSTERONE
     Indication: APHRODISIAC THERAPY
     Dosage: 50 MG, QD
     Route: 061
     Dates: start: 201609
  5. TESTOSTERONE. [Suspect]
     Active Substance: TESTOSTERONE
     Dosage: 50 MG, QD
     Route: 061
     Dates: end: 2015
  6. METHADONE HCL [Concomitant]
     Active Substance: METHADONE HYDROCHLORIDE
     Indication: PAIN
     Dosage: UNK
  7. SEROQUEL [Concomitant]
     Active Substance: QUETIAPINE FUMARATE
     Indication: ANXIETY
     Dosage: UNK
  8. OMEPRAZOLE. [Concomitant]
     Active Substance: OMEPRAZOLE
     Indication: DYSPEPSIA
     Dosage: UNK
  9. LIPITOR [Concomitant]
     Active Substance: ATORVASTATIN CALCIUM
     Indication: BLOOD CHOLESTEROL INCREASED
     Dosage: UNK

REACTIONS (5)
  - Agitation [Recovering/Resolving]
  - Chest discomfort [Recovered/Resolved]
  - Hostility [Recovering/Resolving]
  - Red blood cell count increased [Recovered/Resolved]
  - Hypertension [Recovering/Resolving]

NARRATIVE: CASE EVENT DATE: 201408
